FAERS Safety Report 5855853-7 (Version None)
Quarter: 2008Q3

REPORT INFORMATION
  Report Type: 
  Country: None (occurrence: None)
  Receive Date: 20080825
  Receipt Date: 20080123
  Transmission Date: 20090109
  Serious: Yes (Disabling, Other)
  Sender: FDA-Public Use
  Company Number: A0704909A

PATIENT

DRUGS (1)
  1. MALARONE [Suspect]
     Indication: DRUG USE FOR UNKNOWN INDICATION
     Dosage: 4TAB UNKNOWN
     Route: 048
     Dates: start: 20080121

REACTIONS (2)
  - NAUSEA [None]
  - VOMITING [None]
